FAERS Safety Report 21513366 (Version 1)
Quarter: 2022Q4

REPORT INFORMATION
  Report Type: Spontaneous
  Country: US (occurrence: None)
  Receive Date: 20221026
  Receipt Date: 20221026
  Transmission Date: 20230112
  Serious: No
  Sender: FDA-Public Use
  Company Number: None

PATIENT
  Age: 43 Year
  Sex: Female
  Weight: 81.9 kg

DRUGS (4)
  1. MAXALT [Suspect]
     Active Substance: RIZATRIPTAN BENZOATE
     Indication: Migraine
     Dosage: FREQUENCY : AS NEEDED;?
     Route: 048
  2. PROPRANOLOL [Concomitant]
     Active Substance: PROPRANOLOL HYDROCHLORIDE
  3. RIZATRIPTAN [Concomitant]
     Active Substance: RIZATRIPTAN
  4. ZETIA [Concomitant]
     Active Substance: EZETIMIBE

REACTIONS (1)
  - Palpitations [None]

NARRATIVE: CASE EVENT DATE: 20221026
